FAERS Safety Report 5127867-6 (Version None)
Quarter: 2006Q4

REPORT INFORMATION
  Report Type: 
  Country: None (occurrence: None)
  Receive Date: 20061010
  Receipt Date: 20061002
  Transmission Date: 20070319
  Serious: Yes (Hospitalization, Other)
  Sender: FDA-Public Use
  Company Number: HWQYE126430AUG06

PATIENT
  Age: 44 Year
  Sex: Male

DRUGS (3)
  1. RAPAMUNE [Suspect]
     Indication: PROPHYLAXIS AGAINST TRANSPLANT REJECTION
     Dosage: 3 MG 1X PER 1 DAY
     Route: 048
     Dates: start: 20060622
  2. IMMUNOGLOBULINS (IMMUNOGLOBULINS) [Concomitant]
  3. CORVASAL (MOLSIDOMINE) [Concomitant]

REACTIONS (3)
  - ACUTE PULMONARY OEDEMA [None]
  - CONGESTIVE CARDIOMYOPATHY [None]
  - HYPOXIA [None]
